FAERS Safety Report 7746501-X (Version None)
Quarter: 2011Q3

REPORT INFORMATION
  Report Type: 
  Country: None (occurrence: None)
  Receive Date: 20110913
  Receipt Date: 20110829
  Transmission Date: 20111222
  Serious: Yes (Other)
  Sender: FDA-Public Use
  Company Number: US-PFIZER INC-2011209653

PATIENT
  Age: 66 Year
  Sex: Female

DRUGS (8)
  1. ASPIRIN [Concomitant]
     Indication: HEADACHE
     Dosage: UNK
     Route: 065
  2. MULTI-VITAMINS [Concomitant]
     Indication: PRODUCT USED FOR UNKNOWN INDICATION
     Dosage: 1 DF, DAILY
     Route: 065
  3. PROPRANOLOL HCL [Suspect]
     Dosage: 10 MG, DAILY
     Route: 048
  4. TRAMADOL HCL [Suspect]
     Indication: BACK PAIN
     Dosage: 50 MG, EVERY 4 TO 6 HRS AS NEEDED
     Route: 048
  5. ALCOHOL [Suspect]
     Indication: PRODUCT USED FOR UNKNOWN INDICATION
     Dosage: UNK
     Route: 065
  6. SPIRONOLACTONE [Concomitant]
     Indication: ALCOHOLIC LIVER DISEASE
     Dosage: 25 MG, DAILY
     Route: 047
  7. ASCORBIC ACID [Concomitant]
     Indication: PRODUCT USED FOR UNKNOWN INDICATION
     Dosage: 1 DF, DAILY
     Route: 065
  8. TIOTROPIUM [Concomitant]
     Indication: PAIN
     Dosage: 18 UG, DAILY
     Route: 065

REACTIONS (9)
  - DRUG PRESCRIBING ERROR [None]
  - DRUG INTERACTION [None]
  - INAPPROPRIATE SCHEDULE OF DRUG ADMINISTRATION [None]
  - MEDICATION ERROR [None]
  - DRUG EFFECT DECREASED [None]
  - OFF LABEL USE [None]
  - LOSS OF CONSCIOUSNESS [None]
  - DRUG DOSE OMISSION [None]
  - ALCOHOL USE [None]
